FAERS Safety Report 10255699 (Version 1)
Quarter: 2014Q2

REPORT INFORMATION
  Report Type: Spontaneous
  Country: IT (occurrence: IT)
  Receive Date: 20140624
  Receipt Date: 20140624
  Transmission Date: 20141212
  Serious: Yes (Other)
  Sender: FDA-Public Use
  Company Number: IT-TEVA-489794ISR

PATIENT
  Age: 55 Year
  Sex: Male

DRUGS (1)
  1. AMOXICILLIN TRIHYDRATE [Suspect]
     Indication: PHARYNGITIS
     Dosage: 1 G TOTAL
     Route: 048
     Dates: start: 20140521, end: 20140521

REACTIONS (2)
  - Urticaria [Recovering/Resolving]
  - Paraesthesia oral [Recovering/Resolving]
